FAERS Safety Report 8271758-9 (Version None)
Quarter: 2012Q2

REPORT INFORMATION
  Report Type: 
  Country: None (occurrence: None)
  Receive Date: 20120410
  Receipt Date: 20111220
  Transmission Date: 20120825
  Serious: No
  Sender: FDA-Public Use
  Company Number: US-BAUSCH-2011BL008948

PATIENT
  Age: 54 Year
  Sex: Male

DRUGS (4)
  1. DILTIAZEM HCL [Concomitant]
     Indication: BLOOD PRESSURE
  2. ZIRGAN [Suspect]
     Indication: KERATITIS HERPETIC
     Route: 047
     Dates: start: 20111130, end: 20111215
  3. LOSARTAN POTASSIUM [Concomitant]
     Indication: BLOOD PRESSURE
  4. TRIFLUORIDE [Concomitant]
     Indication: KERATITIS HERPETIC

REACTIONS (1)
  - DRUG INEFFECTIVE [None]
